FAERS Safety Report 14904230 (Version 3)
Quarter: 2018Q3

REPORT INFORMATION
  Report Type: Spontaneous
  Country: US (occurrence: US)
  Receive Date: 20180516
  Receipt Date: 20180726
  Transmission Date: 20181010
  Serious: Yes (Hospitalization, Disabling, Other)
  Sender: FDA-Public Use
  Company Number: US-SA-2018SA138049

PATIENT
  Age: 63 Year
  Sex: Female
  Weight: 172 kg

DRUGS (2)
  1. LANTUS SOLOSTAR [Suspect]
     Active Substance: INSULIN GLARGINE
     Indication: TYPE 2 DIABETES MELLITUS
     Dosage: 25 IU, UNK
     Route: 051
  2. LANTUS SOLOSTAR [Suspect]
     Active Substance: INSULIN GLARGINE
     Dosage: UNK UNK,BID
     Route: 051

REACTIONS (21)
  - Glaucoma [Unknown]
  - Abdominal pain upper [Unknown]
  - Dysphagia [Unknown]
  - Device issue [Unknown]
  - Hiatus hernia [Unknown]
  - Eye disorder [Unknown]
  - Dyspepsia [Unknown]
  - Wrong technique in device usage process [Unknown]
  - Blood glucose fluctuation [Unknown]
  - Injection site discolouration [Unknown]
  - Pancreatic disorder [Unknown]
  - Chronic obstructive pulmonary disease [Unknown]
  - Foot fracture [Unknown]
  - Blood glucose increased [Unknown]
  - Venous occlusion [Unknown]
  - Malaise [Unknown]
  - Product use issue [Unknown]
  - Disability [Unknown]
  - Dyspnoea [Unknown]
  - Diarrhoea [Unknown]
  - Gallbladder disorder [Unknown]

NARRATIVE: CASE EVENT DATE: 2016
